FAERS Safety Report 6807256-6 (Version None)
Quarter: 2010Q2

REPORT INFORMATION
  Report Type: 
  Country: None (occurrence: None)
  Receive Date: 20100629
  Receipt Date: 20081105
  Transmission Date: 20101027
  Serious: No
  Sender: FDA-Public Use
  Company Number: US-PFIZER INC-2008065178

PATIENT
  Sex: Male

DRUGS (8)
  1. VIAGRA [Suspect]
     Indication: ERECTILE DYSFUNCTION
     Route: 048
  2. AVANDIA [Concomitant]
  3. ATENOLOL [Concomitant]
  4. TRICOR [Concomitant]
     Indication: LIPIDS INCREASED
  5. GLYBURIDE [Concomitant]
     Indication: DIABETES MELLITUS
  6. ALL OTHER THERAPEUTIC PRODUCTS [Concomitant]
  7. HERBAL NOS/MINERALS NOS [Concomitant]
  8. ACETYLSALICYLIC ACID [Concomitant]

REACTIONS (2)
  - DRUG INEFFECTIVE [None]
  - EXPIRED DRUG ADMINISTERED [None]
